FAERS Safety Report 7119947-0 (Version None)
Quarter: 2010Q4

REPORT INFORMATION
  Report Type: 
  Country: None (occurrence: None)
  Receive Date: 20101123
  Receipt Date: 20101108
  Transmission Date: 20110411
  Serious: Yes (Hospitalization, Other)
  Sender: FDA-Public Use
  Company Number: CO-PFIZER INC-2010144012

PATIENT
  Age: 63 Year
  Sex: Female

DRUGS (6)
  1. LIPITOR [Suspect]
     Indication: HYPERLIPIDAEMIA
     Dosage: 10 MG, 1X/DAY
     Route: 048
     Dates: start: 20070303
  2. OLMETEC [Suspect]
     Indication: HYPERTENSION
     Dosage: 20/12.5 MG
     Route: 048
     Dates: start: 20070303
  3. METOPROLOL [Concomitant]
     Dosage: 100 MG, 2X/DAY
     Route: 048
  4. GLIBENCLAMIDE [Concomitant]
     Dosage: 5 MG, 2X/DAY
     Route: 048
  5. LOSARTAN [Concomitant]
     Dosage: 50 MG, 2X/DAY
     Route: 048
  6. ACETYLSALICYLIC ACID [Concomitant]
     Dosage: 100 MG, 1X/DAY
     Route: 048

REACTIONS (3)
  - APPENDICITIS [None]
  - CARDIOMEGALY [None]
  - ISCHAEMIC CARDIOMYOPATHY [None]
